FAERS Safety Report 4307873-1 (Version None)
Quarter: 2004Q1

REPORT INFORMATION
  Report Type: 
  Country: None (occurrence: None)
  Receive Date: 20040226
  Receipt Date: 20020113
  Transmission Date: 20041129
  Serious: Yes (Other)
  Sender: FDA-Public Use
  Company Number: 2002137933US

PATIENT
  Sex: Female

DRUGS (1)
  1. CELEBREX [Suspect]
     Indication: ARTHRITIS
     Dosage: 100 MG, PRN; ORAL
     Route: 048
     Dates: end: 20021108

REACTIONS (3)
  - PRURITUS GENERALISED [None]
  - SWOLLEN TONGUE [None]
  - URTICARIA [None]
